FAERS Safety Report 24422675 (Version 1)
Quarter: 2024Q4

REPORT INFORMATION
  Report Type: Report from Study
  Country: IN (occurrence: IN)
  Receive Date: 20241010
  Receipt Date: 20241010
  Transmission Date: 20250115
  Serious: Yes (Other)
  Sender: ROCHE
  Company Number: IN-ROCHE-10000003418

PATIENT
  Age: 68 Year
  Sex: Female

DRUGS (1)
  1. PERJETA [Suspect]
     Active Substance: PERTUZUMAB
     Indication: Breast cancer metastatic
     Dosage: ONGOING
     Route: 042
     Dates: start: 20240416

REACTIONS (8)
  - Circulatory collapse [Unknown]
  - Hypertension [Unknown]
  - Haemoglobin decreased [Unknown]
  - Blood sodium decreased [Unknown]
  - Blood creatinine decreased [Unknown]
  - Abnormal behaviour [Unknown]
  - Off label use [Unknown]
  - Peripheral swelling [Unknown]
